FAERS Safety Report 16193974 (Version 3)
Quarter: 2019Q2

REPORT INFORMATION
  Report Type: Report from Study
  Country: FR (occurrence: FR)
  Receive Date: 20190413
  Receipt Date: 20190513
  Transmission Date: 20190711
  Serious: Yes (Other)
  Sender: FDA-Public Use
  Company Number: PHHY2019FR041257

PATIENT
  Sex: Male
  Weight: 84 kg

DRUGS (3)
  1. SOLUPRED (PREDNISOLONE METASULFOBENZOATE SODIUM) [Suspect]
     Active Substance: PREDNISOLONE SODIUM METAZOATE
     Indication: HEADACHE
  2. VOTRIENT [Suspect]
     Active Substance: PAZOPANIB HYDROCHLORIDE
     Indication: RENAL CANCER METASTATIC
     Dosage: 800 MG, QD
     Route: 048
     Dates: start: 20181221, end: 20190217
  3. SOLUPRED (PREDNISOLONE METASULFOBENZOATE SODIUM) [Suspect]
     Active Substance: PREDNISOLONE SODIUM METAZOATE
     Indication: METASTASES TO CENTRAL NERVOUS SYSTEM
     Dosage: 60 MG, UNK
     Route: 065
     Dates: start: 201811, end: 20190205

REACTIONS (6)
  - Abdominal pain upper [Recovered/Resolved]
  - Cell death [Recovered/Resolved]
  - Diarrhoea [Recovered/Resolved]
  - Cholestasis [Recovered/Resolved]
  - Headache [Recovered/Resolved]
  - Constipation [Recovered/Resolved]

NARRATIVE: CASE EVENT DATE: 201812
